FAERS Safety Report 9056519 (Version 1)
Quarter: 2013Q1

REPORT INFORMATION
  Report Type: Spontaneous
  Country: US (occurrence: US)
  Receive Date: 20130204
  Receipt Date: 20130204
  Transmission Date: 20140127
  Serious: Yes (Hospitalization)
  Sender: FDA-Public Use
  Company Number: US-GLAXOSMITHKLINE-A1006497A

PATIENT
  Sex: Female

DRUGS (4)
  1. LAMICTAL [Suspect]
     Indication: CONVULSION
     Route: 065
     Dates: start: 20120307, end: 20120417
  2. LAMICTAL XR [Suspect]
     Indication: CONVULSION
     Dosage: 100MG UNKNOWN
     Route: 048
     Dates: start: 20120309
  3. KEPPRA [Concomitant]
  4. GABAPENTIN [Concomitant]

REACTIONS (2)
  - Drug reaction with eosinophilia and systemic symptoms [Not Recovered/Not Resolved]
  - Stevens-Johnson syndrome [Unknown]
